FAERS Safety Report 15703446 (Version 1)
Quarter: 2018Q4

REPORT INFORMATION
  Report Type: Spontaneous
  Country: US (occurrence: US)
  Receive Date: 20181209
  Receipt Date: 20181209
  Transmission Date: 20190205
  Serious: Yes (Other)
  Sender: FDA-Public Use
  Company Number: None

PATIENT
  Age: 40 Year
  Sex: Female
  Weight: 60.75 kg

DRUGS (2)
  1. GONAL-F [Suspect]
     Active Substance: FOLLITROPIN
     Indication: ANTI-MUELLERIAN HORMONE LEVEL DECREASED
     Dosage: ?          OTHER ROUTE:INJECTION?
     Dates: start: 20180101, end: 20180715
  2. GONAL-F [Suspect]
     Active Substance: FOLLITROPIN
     Indication: INFERTILITY FEMALE
     Dosage: ?          OTHER ROUTE:INJECTION?
     Dates: start: 20180101, end: 20180715

REACTIONS (2)
  - Endometrial hyperplasia [None]
  - Injection related reaction [None]

NARRATIVE: CASE EVENT DATE: 20180715
